FAERS Safety Report 4675279-1 (Version None)
Quarter: 2005Q2

REPORT INFORMATION
  Report Type: 
  Country: None (occurrence: None)
  Receive Date: 20050527
  Receipt Date: 20050519
  Transmission Date: 20051028
  Serious: Yes (Hospitalization)
  Sender: FDA-Public Use
  Company Number: US-JNJFOC-20050505960

PATIENT
  Sex: Female
  Weight: 90.72 kg

DRUGS (12)
  1. INFLIXIMAB [Suspect]
     Indication: RHEUMATOID ARTHRITIS
     Route: 042
  2. AMBIEN [Concomitant]
     Dosage: 40 MG AT BEDTIME
  3. CALCIUM GLUCONATE [Concomitant]
  4. CELEBREX [Concomitant]
  5. DARVOCET-N 100 [Concomitant]
  6. DARVOCET-N 100 [Concomitant]
  7. METHOTREXATE [Concomitant]
  8. PERCOCET [Concomitant]
  9. PERCOCET [Concomitant]
  10. PREDNISONE TAB [Concomitant]
  11. TYLENOL (CAPLET) [Concomitant]
  12. NEXIUM [Concomitant]

REACTIONS (1)
  - COLON CANCER [None]
